FAERS Safety Report 14122201 (Version 1)
Quarter: 2017Q4

REPORT INFORMATION
  Report Type: Spontaneous
  Country: US (occurrence: US)
  Receive Date: 20171024
  Receipt Date: 20171024
  Transmission Date: 20180321
  Serious: No
  Sender: FDA-Public Use
  Company Number: US-IMPAX LABORATORIES, INC-2017-IPXL-02225

PATIENT
  Age: 57 Year
  Sex: Female

DRUGS (2)
  1. RYTARY [Suspect]
     Active Substance: CARBIDOPA\LEVODOPA
     Dosage: 23.75/95MG ONE CAPSULE TWO TIMES DAILY
     Route: 048
     Dates: start: 201707
  2. RYTARY [Suspect]
     Active Substance: CARBIDOPA\LEVODOPA
     Indication: PARKINSON^S DISEASE
     Dosage: 23.75/95MG ONE CAPSULE TWO TIMES DAILY
     Route: 048
     Dates: start: 201706

REACTIONS (1)
  - Drug effect incomplete [Unknown]
